FAERS Safety Report 5236927-0 (Version None)
Quarter: 2007Q1

REPORT INFORMATION
  Report Type: 
  Country: None (occurrence: None)
  Receive Date: 20070213
  Receipt Date: 20070206
  Transmission Date: 20070707
  Serious: Yes (Life-Threatening)
  Sender: FDA-Public Use
  Company Number: ES-BAYER-200710722GDS

PATIENT
  Age: 75 Year
  Sex: Female
  Weight: 62 kg

DRUGS (5)
  1. ACTIRA [Suspect]
     Indication: PNEUMONIA
     Dosage: TOTAL DAILY DOSE: 400 MG  UNIT DOSE: 400 MG
     Route: 048
     Dates: start: 20070122, end: 20070126
  2. ENALAPRIL MALEATE [Concomitant]
     Indication: HYPERTENSION
     Route: 048
  3. MEPIFILIN [Concomitant]
     Indication: PNEUMONIA
     Dosage: TOTAL DAILY DOSE: 30 ML
     Route: 048
     Dates: start: 20070122, end: 20070128
  4. DEXTROMETORPHAN [Concomitant]
     Indication: PNEUMONIA
     Dosage: TOTAL DAILY DOSE: 30 ML
     Route: 048
     Dates: start: 20070122, end: 20070128
  5. PARACETAMOL [Concomitant]
     Indication: PNEUMONIA
     Dosage: TOTAL DAILY DOSE: 3 G
     Route: 048
     Dates: start: 20070122, end: 20070128

REACTIONS (3)
  - ARRHYTHMIA [None]
  - CHEST PAIN [None]
  - HYPERTENSIVE CRISIS [None]
